FAERS Safety Report 21442430 (Version 1)
Quarter: 2022Q4

REPORT INFORMATION
  Report Type: Spontaneous
  Country: US (occurrence: None)
  Receive Date: 20221010
  Receipt Date: 20221010
  Transmission Date: 20230113
  Serious: No
  Sender: FDA-Public Use
  Company Number: None

PATIENT
  Age: 58 Year
  Sex: Male

DRUGS (1)
  1. SUCCINYLCHOLINE CHLORIDE [Suspect]
     Active Substance: SUCCINYLCHOLINE CHLORIDE
     Indication: Pain
     Dates: start: 20220714, end: 20220714

REACTIONS (1)
  - Bradycardia [None]

NARRATIVE: CASE EVENT DATE: 20220714
